FAERS Safety Report 6962394-2 (Version None)
Quarter: 2010Q3

REPORT INFORMATION
  Report Type: 
  Country: None (occurrence: None)
  Receive Date: 20100823
  Receipt Date: 20100716
  Transmission Date: 20110219
  Serious: No
  Sender: FDA-Public Use
  Company Number: 015679

PATIENT
  Sex: Female
  Weight: 73.5 kg

DRUGS (3)
  1. CIMZIA [Suspect]
     Indication: CROHN'S DISEASE
     Dosage: (400 MG 1X/MONTH, 2 INJECTIONS OF 200 MG MONTHLY SUBCUTANEOUS)
     Route: 058
     Dates: start: 20100401
  2. PURINETHOL [Concomitant]
  3. PERCOCET [Concomitant]

REACTIONS (2)
  - ANAL FISTULA [None]
  - PERIRECTAL ABSCESS [None]
